FAERS Safety Report 13804821 (Version 1)
Quarter: 2017Q3

REPORT INFORMATION
  Report Type: Spontaneous
  Country: US (occurrence: US)
  Receive Date: 20170728
  Receipt Date: 20170728
  Transmission Date: 20171127
  Serious: No
  Sender: FDA-Public Use
  Company Number: US-ABBVIE-17P-163-1996367-00

PATIENT
  Sex: Female

DRUGS (1)
  1. SYNTHROID [Suspect]
     Active Substance: LEVOTHYROXINE SODIUM
     Indication: HYPOTHYROIDISM
     Dosage: THE PATIENT STARTED AND STOPPED LEVOTHYROXINE.
     Route: 065

REACTIONS (1)
  - Blood thyroid stimulating hormone abnormal [Not Recovered/Not Resolved]

NARRATIVE: CASE EVENT DATE: 2007
